FAERS Safety Report 17765894 (Version 1)
Quarter: 2020Q2

REPORT INFORMATION
  Report Type: Spontaneous
  Country: US (occurrence: US)
  Receive Date: 20200511
  Receipt Date: 20200511
  Transmission Date: 20200714
  Serious: Yes (Hospitalization)
  Sender: FDA-Public Use
  Company Number: US-PFIZER INC-2020186468

PATIENT
  Age: 63 Year
  Sex: Female

DRUGS (2)
  1. RIFABUTIN. [Suspect]
     Active Substance: RIFABUTIN
     Indication: LATENT TUBERCULOSIS
     Dosage: 300 MG, DAILY (FOR A 4-MONTH TREATMENT COURSE 9 MONTHS PRIOR)
  2. GENVOYA [Interacting]
     Active Substance: COBICISTAT\ELVITEGRAVIR\EMTRICITABINE\TENOFOVIR ALAFENAMIDE FUMARATE
     Indication: HIV INFECTION
     Dosage: UNK (STARTED 5 MONTHS PRIOR TO ADMISSION)

REACTIONS (3)
  - Hypopyon [Recovering/Resolving]
  - Uveitis [Recovering/Resolving]
  - Drug interaction [Unknown]
